FAERS Safety Report 17859564 (Version 1)
Quarter: 2020Q2

REPORT INFORMATION
  Report Type: Spontaneous
  Country: GB (occurrence: GB)
  Receive Date: 20200604
  Receipt Date: 20200604
  Transmission Date: 20200714
  Serious: Yes (Hospitalization)
  Sender: FDA-Public Use
  Company Number: GB-TEVA-2020-GB-1243829

PATIENT
  Age: 65 Year
  Sex: Male
  Weight: 76.4 kg

DRUGS (1)
  1. IBUPROFEN. [Suspect]
     Active Substance: IBUPROFEN
     Route: 048
     Dates: start: 20200514, end: 20200517

REACTIONS (2)
  - Gastric ulcer haemorrhage [Recovered/Resolved with Sequelae]
  - Helicobacter test positive [Unknown]

NARRATIVE: CASE EVENT DATE: 20200517
